FAERS Safety Report 4655943-0 (Version None)
Quarter: 2005Q2

REPORT INFORMATION
  Report Type: 
  Country: None (occurrence: None)
  Receive Date: 20050505
  Receipt Date: 20050420
  Transmission Date: 20051028
  Serious: Yes (Life-Threatening, Hospitalization)
  Sender: FDA-Public Use
  Company Number: 2003006591

PATIENT
  Age: 31 Year
  Sex: Male

DRUGS (6)
  1. VIBRAMYCIN (CAPS) (DOXYCYCLINE) [Suspect]
     Indication: PROSTATITIS
     Dates: start: 20021110, end: 20021229
  2. XANAX [Suspect]
     Indication: DEPRESSION
     Dosage: PRN, ORAL
     Route: 048
     Dates: end: 20030105
  3. FUSAFUNGINE (FUSAFUNGINE) [Suspect]
     Indication: ILL-DEFINED DISORDER
     Dates: end: 20030105
  4. ROXITHROMYCIN (ROXITHROMYCIN) [Suspect]
     Indication: PROSTATITIS
     Dosage: ORAL
     Route: 048
     Dates: start: 20020925, end: 20021025
  5. IBUPROFEN [Suspect]
     Indication: ILL-DEFINED DISORDER
     Dosage: ORAL
     Route: 048
     Dates: end: 20030105
  6. PREDNISONE [Concomitant]

REACTIONS (4)
  - ANAEMIA [None]
  - BONE MARROW DEPRESSION [None]
  - IDIOPATHIC THROMBOCYTOPENIC PURPURA [None]
  - MOUTH HAEMORRHAGE [None]
